FAERS Safety Report 8880943 (Version 3)
Quarter: 2013Q1

REPORT INFORMATION
  Report Type: Report from Study
  Country: PL (occurrence: PL)
  Receive Date: 20121101
  Receipt Date: 20130211
  Transmission Date: 20140127
  Serious: Yes (Death, Hospitalization)
  Sender: FDA-Public Use
  Company Number: PL-PFIZER INC-2012260394

PATIENT
  Age: 74 Year
  Sex: Male
  Weight: 69 kg

DRUGS (3)
  1. TEMSIROLIMUS [Suspect]
     Indication: MANTLE CELL LYMPHOMA
     Dosage: 75 MG, WEEKLY, ARM B
     Route: 042
     Dates: start: 20121011, end: 20121011
  2. DESIPRAMINE [Suspect]
     Indication: MANTLE CELL LYMPHOMA
     Dosage: 50 MG, CYCLIC (ONCE WEEKLY FOR 2 WEEKS)
     Route: 048
     Dates: start: 20121003, end: 20121011
  3. TRANSTEC [Concomitant]
     Indication: PAIN
     Dosage: 25 UG/H
     Route: 062

REACTIONS (2)
  - Disease progression [Fatal]
  - Mantle cell lymphoma [Fatal]
